FAERS Safety Report 19870024 (Version 1)
Quarter: 2021Q3

REPORT INFORMATION
  Report Type: Spontaneous
  Country: TW (occurrence: TW)
  Receive Date: 20210923
  Receipt Date: 20210923
  Transmission Date: 20211014
  Serious: Yes (Other)
  Sender: FDA-Public Use
  Company Number: TW-SUN PHARMACEUTICAL INDUSTRIES LTD-2021RR-312275

PATIENT
  Age: 61 Year
  Sex: Female

DRUGS (7)
  1. PEMBROLIZUMAB. [Suspect]
     Active Substance: PEMBROLIZUMAB
     Indication: TRANSITIONAL CELL CARCINOMA
     Dosage: 1 MILLIGRAM/KILOGRAM, UNK
     Route: 042
     Dates: start: 201608
  2. BEVACIZUMAB. [Suspect]
     Active Substance: BEVACIZUMAB
     Indication: TRANSITIONAL CELL CARCINOMA
     Dosage: 4 MILLIGRAM/KILOGRAM, UNK
     Route: 042
     Dates: start: 201608
  3. CISPLATIN. [Suspect]
     Active Substance: CISPLATIN
     Indication: TRANSITIONAL CELL CARCINOMA
     Dosage: 50 MILLIGRAM/SQ. METER
     Route: 042
     Dates: start: 201608
  4. GEMCITABINE. [Suspect]
     Active Substance: GEMCITABINE
     Indication: TRANSITIONAL CELL CARCINOMA
     Dosage: 500 MILLIGRAM/SQ. METER, UNK
     Route: 042
     Dates: start: 201608
  5. TACROLIMUS. [Suspect]
     Active Substance: TACROLIMUS
     Indication: TRANSITIONAL CELL CARCINOMA
     Dosage: 9 GRAM, DAILY
     Route: 065
  6. TACROLIMUS. [Suspect]
     Active Substance: TACROLIMUS
     Dosage: 10 GRAM, DAILY
     Route: 065
  7. MYCOPHENOLATE MOFETIL. [Suspect]
     Active Substance: MYCOPHENOLATE MOFETIL
     Indication: TRANSITIONAL CELL CARCINOMA
     Dosage: 1 GRAM, DAILY
     Route: 065

REACTIONS (2)
  - Rash maculo-papular [Recovered/Resolved]
  - Therapy partial responder [Unknown]
